FAERS Safety Report 7501554-9 (Version None)
Quarter: 2011Q2

REPORT INFORMATION
  Report Type: 
  Country: None (occurrence: None)
  Receive Date: 20110524
  Receipt Date: 20110511
  Transmission Date: 20111010
  Serious: Yes (Hospitalization)
  Sender: FDA-Public Use
  Company Number: JP-GENENTECH-317326

PATIENT
  Sex: Female

DRUGS (9)
  1. ADOAIR [Concomitant]
     Indication: PRODUCT USED FOR UNKNOWN INDICATION
  2. OMALIZUMAB [Suspect]
     Indication: ASTHMA
     Dosage: 150 MG, UNK
     Route: 058
     Dates: start: 20110401
  3. SYMBICORT [Concomitant]
     Indication: PRODUCT USED FOR UNKNOWN INDICATION
     Dosage: UNK
     Dates: start: 20100701
  4. MEPTIN [Concomitant]
     Indication: PRODUCT USED FOR UNKNOWN INDICATION
  5. THEOLONG [Concomitant]
     Indication: PRODUCT USED FOR UNKNOWN INDICATION
  6. UNIPHYL [Concomitant]
     Indication: PRODUCT USED FOR UNKNOWN INDICATION
     Dosage: UNK
     Dates: start: 20110201
  7. SINGULAIR [Concomitant]
     Indication: PRODUCT USED FOR UNKNOWN INDICATION
     Dosage: UNK
     Dates: start: 20110101
  8. PULMICORT [Concomitant]
     Indication: PRODUCT USED FOR UNKNOWN INDICATION
     Dosage: UNK
     Dates: start: 20110101
  9. ONON [Concomitant]
     Indication: PRODUCT USED FOR UNKNOWN INDICATION
     Dosage: UNK
     Dates: start: 20101201

REACTIONS (3)
  - RESPIRATORY DISORDER [None]
  - PO2 DECREASED [None]
  - PCO2 DECREASED [None]
